FAERS Safety Report 9179860 (Version 1)
Quarter: 2012Q4

REPORT INFORMATION
  Report Type: Report from Study
  Country: CA (occurrence: CA)
  Receive Date: 20121029
  Receipt Date: 20121029
  Transmission Date: 20130627
  Serious: Yes (Other)
  Sender: FDA-Public Use
  Company Number: CA-JNJFOC-20121009718

PATIENT
  Sex: Male
  Weight: 71.67 kg

DRUGS (2)
  1. REMICADE [Suspect]
     Indication: CROHN^S DISEASE
     Route: 042
     Dates: start: 20110511
  2. CORTIFOAM [Concomitant]
     Route: 054

REACTIONS (2)
  - Anorectal operation [Not Recovered/Not Resolved]
  - Haemorrhage [Not Recovered/Not Resolved]
